FAERS Safety Report 16178045 (Version 1)
Quarter: 2019Q2

REPORT INFORMATION
  Report Type: Spontaneous
  Country: US (occurrence: US)
  Receive Date: 20190410
  Receipt Date: 20190410
  Transmission Date: 20190711
  Serious: Yes (Death, Other)
  Sender: FDA-Public Use
  Company Number: US-DRREDDYS-USA/USA/19/0109302

PATIENT
  Age: 8 Month
  Sex: Male

DRUGS (7)
  1. ALEMTUZUMAB [Suspect]
     Active Substance: ALEMTUZUMAB
     Indication: METACHROMATIC LEUKODYSTROPHY
  2. TACROLIMUS. [Suspect]
     Active Substance: TACROLIMUS
     Indication: IMMUNOSUPPRESSION
  3. MYCOPHENOLATE MOFETIL. [Suspect]
     Active Substance: MYCOPHENOLATE MOFETIL
     Indication: IMMUNOSUPPRESSION
  4. FLUDARABINE [Suspect]
     Active Substance: FLUDARABINE PHOSPHATE
     Indication: METACHROMATIC LEUKODYSTROPHY
  5. MELPHALAN. [Suspect]
     Active Substance: MELPHALAN
     Indication: METACHROMATIC LEUKODYSTROPHY
  6. THIOTEPA. [Suspect]
     Active Substance: THIOTEPA
     Indication: METACHROMATIC LEUKODYSTROPHY
  7. HYDROXYUREA. [Suspect]
     Active Substance: HYDROXYUREA
     Indication: METACHROMATIC LEUKODYSTROPHY

REACTIONS (10)
  - Cardio-respiratory arrest [Fatal]
  - Cytomegalovirus viraemia [Unknown]
  - Rhinovirus infection [Unknown]
  - Respiratory disorder [Unknown]
  - Adenovirus infection [Unknown]
  - Neutropenia [Unknown]
  - Parainfluenzae virus infection [Unknown]
  - Immune reconstitution inflammatory syndrome [Fatal]
  - Vascular device infection [Unknown]
  - Lymphopenia [Unknown]
